FAERS Safety Report 22522427 (Version 1)
Quarter: 2023Q2

REPORT INFORMATION
  Report Type: Spontaneous
  Country: SE (occurrence: SE)
  Receive Date: 20230605
  Receipt Date: 20230605
  Transmission Date: 20230721
  Serious: Yes (Other)
  Sender: FDA-Public Use
  Company Number: SE-002147023-NVSC2023SE107514

PATIENT
  Sex: Female

DRUGS (2)
  1. TEGRETOL XR [Suspect]
     Active Substance: CARBAMAZEPINE
     Indication: Trigeminal neuralgia
     Dosage: 200 MG
     Route: 065
  2. TEGRETOL XR [Suspect]
     Active Substance: CARBAMAZEPINE
     Dosage: 200 MG, BID (200MG EACH MORNING AND 200MG EACH NIGHT, MAKING IT A TOTAL OF 400 MG PER DAY)
     Route: 065
     Dates: start: 20230509

REACTIONS (7)
  - Mental impairment [Unknown]
  - Muscle twitching [Unknown]
  - Depressed mood [Unknown]
  - Memory impairment [Unknown]
  - Fatigue [Unknown]
  - Somnolence [Unknown]
  - Expired product administered [Unknown]
